FAERS Safety Report 10038836 (Version 1)
Quarter: 2014Q1

REPORT INFORMATION
  Report Type: Spontaneous
  Country: GB (occurrence: GB)
  Receive Date: 20140326
  Receipt Date: 20140326
  Transmission Date: 20141002
  Serious: Yes (Death)
  Sender: FDA-Public Use
  Company Number: GB-ACTAVIS-2014-05384

PATIENT
  Age: 37 Year
  Sex: Male

DRUGS (1)
  1. OXYCODONE (UNKNOWN) [Suspect]
     Indication: ARTHRALGIA
     Dosage: UNK
     Route: 065
     Dates: start: 2004

REACTIONS (2)
  - Pulmonary oedema [Fatal]
  - Intentional overdose [Fatal]
